FAERS Safety Report 7573789-0 (Version None)
Quarter: 2011Q2

REPORT INFORMATION
  Report Type: 
  Country: None (occurrence: None)
  Receive Date: 20110627
  Receipt Date: 20110624
  Transmission Date: 20111010
  Serious: Yes (Hospitalization)
  Sender: FDA-Public Use
  Company Number: JP-B.I. PHARMACEUTICALS,INC./RIDGEFIELD-2011-BP-11383NB

PATIENT
  Sex: Female
  Weight: 35 kg

DRUGS (11)
  1. TAKEPRON / LANSOPRAZOLE [Concomitant]
     Indication: REFLUX OESOPHAGITIS
     Dosage: 15 MG
     Route: 048
     Dates: start: 20101228
  2. BIOFERMIN / LACTOMIN [Concomitant]
     Indication: DIARRHOEA
     Dosage: 3 G
     Route: 048
     Dates: start: 20101228, end: 20110420
  3. SARPOGRELATE HYDROCHLORIDE [Suspect]
     Indication: ARTERIAL OCCLUSIVE DISEASE
     Dosage: 300 MG
     Route: 048
     Dates: start: 20110126, end: 20110420
  4. GLACTIV [Suspect]
     Indication: DIABETES MELLITUS
     Dosage: 25 MG
     Route: 048
     Dates: start: 20110412, end: 20110420
  5. FUROSEMIDE [Concomitant]
     Indication: CARDIAC FAILURE CONGESTIVE
     Dosage: 20 MG
     Route: 048
     Dates: start: 20101228
  6. ISOCORONAL R / ISOSORBIDE DINITRATE [Concomitant]
     Indication: ANGINA PECTORIS
     Dosage: 40 MG
     Route: 048
     Dates: start: 20101228
  7. PRADAXA [Suspect]
     Indication: CEREBROVASCULAR ACCIDENT PROPHYLAXIS
     Dosage: 300 MG
     Route: 048
     Dates: start: 20110412, end: 20110420
  8. AZULENE-GLUTAMINE FINE GRANULE / SODIUM GUALENATE HYDRATE_L-GLUTAMINE [Concomitant]
     Indication: GASTRITIS
     Route: 048
     Dates: start: 20110115
  9. ALLOPURINOL [Concomitant]
     Indication: HYPERURICAEMIA
     Dosage: 100 MG
     Route: 048
     Dates: start: 20101228
  10. CRESTOR [Suspect]
     Indication: HYPERCHOLESTEROLAEMIA
     Dosage: 2.5 MG
     Route: 048
     Dates: start: 20110412, end: 20110420
  11. AMLODIPINE OD / AMLODIPINE BESILATE [Concomitant]
     Indication: HYPERTENSION
     Dosage: 5 MG
     Route: 048
     Dates: start: 20101201

REACTIONS (4)
  - HAEMORRHAGE [None]
  - HAEMATOCHEZIA [None]
  - HAEMORRHAGIC ANAEMIA [None]
  - COAGULOPATHY [None]
